FAERS Safety Report 18918693 (Version 8)
Quarter: 2021Q4

REPORT INFORMATION
  Report Type: Report from Study
  Country: DE (occurrence: DE)
  Receive Date: 20210220
  Receipt Date: 20211001
  Transmission Date: 20220303
  Serious: Yes (Other)
  Sender: FDA-Public Use
  Company Number: DE-ROCHE-2768449

PATIENT
  Age: 83 Year
  Sex: Male
  Weight: 72 kg

DRUGS (16)
  1. ATEZOLIZUMAB [Suspect]
     Active Substance: ATEZOLIZUMAB
     Indication: Transitional cell carcinoma
     Dosage: DATE OF MOST RECENT DOSE OF ATEZOLIZUMAB PRIOR TO AE 05/JAN/2021
     Route: 041
     Dates: start: 20191219, end: 20210112
  2. CABOZANTINIB [Suspect]
     Active Substance: CABOZANTINIB
     Indication: Transitional cell carcinoma
     Dosage: ORALLY DAILY AT DOSE LEVELS OF 20 MG, 40 MG, OR 60 MG.?DATE OF MOST RECENT DOSE OF CARBOZANTINIB PRI
     Route: 048
     Dates: start: 20191219, end: 20210112
  3. HYDROGEN PEROXIDE [Concomitant]
     Active Substance: HYDROGEN PEROXIDE
  4. PRAMIPEXOLE [Concomitant]
     Active Substance: PRAMIPEXOLE
  5. AMLODIPINE [Concomitant]
     Active Substance: AMLODIPINE BESYLATE
  6. CLOPIDOGREL [Concomitant]
     Active Substance: CLOPIDOGREL BISULFATE
  7. PANTHENOL [Concomitant]
     Active Substance: PANTHENOL
  8. ATORVASTATIN [Concomitant]
     Active Substance: ATORVASTATIN
  9. NOVALGIN (METAMIZOLE SODIUM) [Concomitant]
     Active Substance: METAMIZOLE SODIUM
  10. PANTOPRAZOLE [Concomitant]
     Active Substance: PANTOPRAZOLE
  11. CLOBETASOL [Concomitant]
     Active Substance: CLOBETASOL
  12. TRAMADOL [Concomitant]
     Active Substance: TRAMADOL
  13. VALSARTAN [Concomitant]
     Active Substance: VALSARTAN
  14. UREA [Concomitant]
     Active Substance: UREA
  15. PREDNISOLONE [Concomitant]
     Active Substance: PREDNISOLONE
  16. ASPIRIN [Concomitant]
     Active Substance: ASPIRIN

REACTIONS (1)
  - Transaminases increased [Not Recovered/Not Resolved]

NARRATIVE: CASE EVENT DATE: 20210104
